FAERS Safety Report 14270686 (Version 1)
Quarter: 2017Q4

REPORT INFORMATION
  Report Type: Spontaneous
  Country: JP (occurrence: JP)
  Receive Date: 20171211
  Receipt Date: 20171211
  Transmission Date: 20180321
  Serious: Yes (Death, Other)
  Sender: FDA-Public Use
  Company Number: JP-OTSUKA-005513

PATIENT
  Age: 68 Year
  Sex: Male
  Weight: 59.6 kg

DRUGS (15)
  1. ABILIFY [Suspect]
     Active Substance: ARIPIPRAZOLE
     Dosage: 12 MG, QD
     Route: 048
     Dates: start: 20081021, end: 20081027
  2. SERENACE [Suspect]
     Active Substance: HALOPERIDOL
     Indication: HALLUCINATION
     Dosage: 5 MG, QD
     Route: 065
     Dates: start: 20081222
  3. RISPERDAL [Suspect]
     Active Substance: RISPERIDONE
     Dosage: 2 MG, TID
     Route: 048
     Dates: start: 20081222, end: 20081223
  4. RISPERDAL [Suspect]
     Active Substance: RISPERIDONE
     Indication: HALLUCINATION
     Dosage: 1 MG, BID
     Route: 048
     Dates: start: 20081215, end: 20081223
  5. CLONAZEPAM. [Suspect]
     Active Substance: CLONAZEPAM
     Indication: PRODUCT USED FOR UNKNOWN INDICATION
     Dosage: 0.5 MG, TID
     Route: 048
     Dates: start: 20081027, end: 20081223
  6. RISPERDAL [Concomitant]
     Active Substance: RISPERIDONE
     Dosage: 0.5 MG, TID
     Route: 048
     Dates: start: 20081021, end: 20081027
  7. RIVOTRIL [Suspect]
     Active Substance: CLONAZEPAM
     Indication: PRODUCT USED FOR UNKNOWN INDICATION
     Dosage: 0.5 MG, TID
     Route: 048
     Dates: start: 20081027, end: 20081223
  8. RISPERIDONE. [Suspect]
     Active Substance: RISPERIDONE
     Indication: HALLUCINATION
     Dosage: POWDER FOR OS 23MAY-27OCT,TABS17NOV08-23DEC08;LIQUID FORM18-21DEC08 2MGBID,1MGBID-15-23DEC.
     Route: 048
     Dates: start: 20081117, end: 20081223
  9. RISPERDAL [Concomitant]
     Active Substance: RISPERIDONE
     Indication: PRODUCT USED FOR UNKNOWN INDICATION
     Dosage: 1 MG, TID
     Route: 048
     Dates: start: 20080523, end: 20081020
  10. ABILIFY [Suspect]
     Active Substance: ARIPIPRAZOLE
     Indication: SCHIZOPHRENIA
     Dosage: 6 MG, QD
     Route: 048
     Dates: start: 20080523, end: 20081020
  11. ABILIFY [Suspect]
     Active Substance: ARIPIPRAZOLE
     Dosage: 18 MG, QD
     Route: 048
     Dates: start: 20081028, end: 20081222
  12. RISPERDAL [Suspect]
     Active Substance: RISPERIDONE
     Indication: PRODUCT USED FOR UNKNOWN INDICATION
     Dosage: 1 MG, QD
     Route: 048
     Dates: start: 20081117, end: 20081223
  13. RISPERDAL [Suspect]
     Active Substance: RISPERIDONE
     Indication: DELUSION
     Dosage: 2 MG, BID
     Route: 048
     Dates: start: 20081218, end: 20081221
  14. SERENACE [Suspect]
     Active Substance: HALOPERIDOL
     Indication: DELUSION
  15. RISPERIDONE. [Suspect]
     Active Substance: RISPERIDONE
     Indication: DELUSION

REACTIONS (2)
  - Completed suicide [Fatal]
  - Persecutory delusion [Not Recovered/Not Resolved]

NARRATIVE: CASE EVENT DATE: 20081215
